FAERS Safety Report 6625536-4 (Version None)
Quarter: 2010Q1

REPORT INFORMATION
  Report Type: 
  Country: None (occurrence: None)
  Receive Date: 20100310
  Receipt Date: 20100226
  Transmission Date: 20100710
  Serious: No
  Sender: FDA-Public Use
  Company Number: US-B.I. PHARMACEUTICALS,INC./RIDGEFIELD-2010-BP-02459BP

PATIENT
  Sex: Female

DRUGS (7)
  1. SPIRIVA [Suspect]
     Indication: ASTHMA
     Dosage: 18 MCG
     Route: 055
     Dates: start: 20040101
  2. SPIRIVA [Suspect]
     Indication: CHRONIC OBSTRUCTIVE PULMONARY DISEASE
  3. ATROVENT [Concomitant]
  4. ASTELIN [Concomitant]
  5. FLOVENT [Concomitant]
  6. ADVAIR DISKUS 100/50 [Concomitant]
  7. MAXAIR [Concomitant]

REACTIONS (1)
  - PNEUMONIA [None]
